FAERS Safety Report 23331289 (Version 3)
Quarter: 2025Q1

REPORT INFORMATION
  Report Type: Report from Study
  Country: ZA (occurrence: ZA)
  Receive Date: 20231222
  Receipt Date: 20250204
  Transmission Date: 20250408
  Serious: Yes (Death, Hospitalization, Other)
  Sender: CELLTRION
  Company Number: ZA-CELLTRION INC.-2023ZA021977

PATIENT

DRUGS (2)
  1. INFLIXIMAB-DYYB [Suspect]
     Active Substance: INFLIXIMAB-DYYB
     Indication: Rheumatoid arthritis
     Route: 042
  2. INFLIXIMAB-DYYB [Suspect]
     Active Substance: INFLIXIMAB-DYYB
     Route: 042

REACTIONS (7)
  - Death [Fatal]
  - Hip surgery [Recovering/Resolving]
  - Cellulitis [Recovering/Resolving]
  - Arthralgia [Recovering/Resolving]
  - Hypersensitivity [Unknown]
  - Overdose [Unknown]
  - Intentional dose omission [Unknown]

NARRATIVE: CASE EVENT DATE: 20231110
